FAERS Safety Report 8545076-5 (Version None)
Quarter: 2012Q3

REPORT INFORMATION
  Report Type: 
  Country: None (occurrence: None)
  Receive Date: 20120727
  Receipt Date: 20120718
  Transmission Date: 20120928
  Serious: Yes (Hospitalization, Other)
  Sender: FDA-Public Use
  Company Number: DE-VERTEX PHARMACEUTICALS INC.-000000000000000704

PATIENT
  Sex: Male

DRUGS (5)
  1. REBETOL [Concomitant]
     Route: 048
  2. INCIVO [Suspect]
     Indication: PRODUCT USED FOR UNKNOWN INDICATION
     Dosage: DOSAGE FORM: TABLET
     Route: 048
     Dates: start: 20120504, end: 20120510
  3. PEGASYS [Concomitant]
     Route: 058
  4. PEGASYS [Concomitant]
     Route: 058
     Dates: start: 20120504
  5. REBETOL [Concomitant]
     Route: 048
     Dates: start: 20120504

REACTIONS (7)
  - LEUKOPENIA [None]
  - RASH GENERALISED [None]
  - ANAL STENOSIS [None]
  - PROCTITIS [None]
  - GASTROINTESTINAL PAIN [None]
  - NEUTROPENIA [None]
  - THROMBOCYTOPENIA [None]
